FAERS Safety Report 9476045 (Version 1)
Quarter: 2013Q3

REPORT INFORMATION
  Report Type: Spontaneous
  Country: DK (occurrence: None)
  Receive Date: 20130821
  Receipt Date: 20130821
  Transmission Date: 20140515
  Serious: Yes (Disabling)
  Sender: FDA-Public Use
  Company Number: 2013P1017942

PATIENT
  Age: 41 Year
  Sex: Female

DRUGS (7)
  1. FLUCONAZOLE [Suspect]
     Indication: ORAL CANDIDIASIS
     Dosage: X5
  2. VINCRISTINE [Suspect]
     Indication: EWING^S SARCOMA
  3. IFOSFAMIDE [Suspect]
     Indication: EWING^S SARCOMA
  4. ETOPOSIDE [Suspect]
     Indication: EWING^S SARCOMA
  5. PREDNISOLONE [Suspect]
  6. MIRTAZAPINE [Suspect]
  7. DOXORUBICIN [Concomitant]

REACTIONS (4)
  - Motor dysfunction [None]
  - Drug interaction [None]
  - Neuropathy peripheral [None]
  - Neurotoxicity [None]
